FAERS Safety Report 15693652 (Version 1)
Quarter: 2018Q4

REPORT INFORMATION
  Report Type: Spontaneous
  Country: US (occurrence: US)
  Receive Date: 20181206
  Receipt Date: 20181206
  Transmission Date: 20190205
  Serious: Yes (Hospitalization, Disabling)
  Sender: FDA-Public Use
  Company Number: US-JNJFOC-20181201856

PATIENT
  Age: 67 Year
  Sex: Male

DRUGS (1)
  1. INVOKANA [Suspect]
     Active Substance: CANAGLIFLOZIN
     Indication: TYPE 2 DIABETES MELLITUS
     Route: 048
     Dates: start: 20140805, end: 201712

REACTIONS (7)
  - Skin ulcer [Recovering/Resolving]
  - Diabetic foot infection [Recovering/Resolving]
  - Skin necrosis [Recovering/Resolving]
  - Osteomyelitis [Recovering/Resolving]
  - Cellulitis [Recovering/Resolving]
  - Gangrene [Recovering/Resolving]
  - Leg amputation [Recovering/Resolving]

NARRATIVE: CASE EVENT DATE: 20171111
